FAERS Safety Report 8573385-2 (Version None)
Quarter: 2012Q3

REPORT INFORMATION
  Report Type: 
  Country: None (occurrence: None)
  Receive Date: 20120806
  Receipt Date: 20120726
  Transmission Date: 20120928
  Serious: Yes (Hospitalization)
  Sender: FDA-Public Use
  Company Number: IT-BRISTOL-MYERS SQUIBB COMPANY-16813123

PATIENT
  Age: 82 Year
  Sex: Female

DRUGS (3)
  1. DULOXETINE HYDROCHLORIDE [Concomitant]
     Indication: DEPRESSION
     Dosage: RIGID CAPSULE
     Route: 048
     Dates: start: 20120101, end: 20120531
  2. COUMADIN [Suspect]
     Indication: ANTICOAGULANT THERAPY
     Dates: start: 20120101, end: 20120531
  3. SOTALOL HYDROCHLORIDE [Concomitant]
     Indication: ARRHYTHMIA
     Route: 048
     Dates: start: 20120101, end: 20120531

REACTIONS (3)
  - SYNCOPE [None]
  - EPISTAXIS [None]
  - HAEMORRHAGIC ANAEMIA [None]
